FAERS Safety Report 24023684 (Version 1)
Quarter: 2024Q2

REPORT INFORMATION
  Report Type: Report from Study
  Country: JP (occurrence: JP)
  Receive Date: 20240627
  Receipt Date: 20240627
  Transmission Date: 20240716
  Serious: No
  Sender: FDA-Public Use
  Company Number: JP-CHUGAI-2024017340

PATIENT
  Age: 73 Year
  Sex: Male

DRUGS (9)
  1. VABYSMO [Suspect]
     Active Substance: FARICIMAB\FARICIMAB-SVOA
     Indication: Neovascular age-related macular degeneration
     Dosage: 6.0 MILLIGRAM, LEFT EYE
     Route: 050
     Dates: start: 20230217, end: 20230217
  2. VABYSMO [Suspect]
     Active Substance: FARICIMAB\FARICIMAB-SVOA
     Dosage: 6.0 MILLIGRAM, LEFT EYE
     Route: 050
     Dates: start: 20230317, end: 20230317
  3. VABYSMO [Suspect]
     Active Substance: FARICIMAB\FARICIMAB-SVOA
     Dosage: 6.0 MILLIGRAM, LEFT EYE
     Route: 050
     Dates: start: 20230417, end: 20230417
  4. VABYSMO [Suspect]
     Active Substance: FARICIMAB\FARICIMAB-SVOA
     Dosage: 6.0 MILLIGRAM, LEFT EYE
     Route: 050
     Dates: start: 20230529, end: 20230529
  5. VABYSMO [Suspect]
     Active Substance: FARICIMAB\FARICIMAB-SVOA
     Dosage: 6.0 MILLIGRAM, LEFT EYE
     Route: 050
     Dates: start: 20230714, end: 20230714
  6. VABYSMO [Suspect]
     Active Substance: FARICIMAB\FARICIMAB-SVOA
     Dosage: 6.0 MILLIGRAM,LEFT EYE
     Route: 050
     Dates: start: 20230825, end: 20230825
  7. VABYSMO [Suspect]
     Active Substance: FARICIMAB\FARICIMAB-SVOA
     Dosage: 6.0 MILLIGRAM, LEFT EYE
     Route: 050
     Dates: start: 20231013, end: 20231013
  8. VABYSMO [Suspect]
     Active Substance: FARICIMAB\FARICIMAB-SVOA
     Dosage: 6.0 MILLIGRAM, LEFT EYE
     Route: 050
     Dates: start: 20240119, end: 20240119
  9. VABYSMO [Suspect]
     Active Substance: FARICIMAB\FARICIMAB-SVOA
     Dosage: 6.0 MILLIGRAM, LEFT EYE?STRENGTH: 120 MG/ML
     Route: 050
     Dates: start: 20240308, end: 20240308

REACTIONS (2)
  - Drug ineffective [Unknown]
  - No adverse event [Unknown]

NARRATIVE: CASE EVENT DATE: 20240101
